FAERS Safety Report 23572503 (Version 1)
Quarter: 2024Q1

REPORT INFORMATION
  Report Type: Report from Study
  Country: US (occurrence: US)
  Receive Date: 20240227
  Receipt Date: 20240227
  Transmission Date: 20240410
  Serious: Yes (Hospitalization)
  Sender: FDA-Public Use
  Company Number: US-BAUSCH-BL-2023-010326

PATIENT
  Age: 65 Year
  Sex: Male
  Weight: 113.5 kg

DRUGS (1)
  1. SILIQ [Suspect]
     Active Substance: BRODALUMAB
     Indication: Psoriasis
     Dosage: INJECT 210MG SUBCUTANEOUSLY ON WEEK 0, 1 AND 2 AS DIRECTED.
     Route: 058
     Dates: start: 202306

REACTIONS (7)
  - Seizure [Unknown]
  - Psoriasis [Unknown]
  - Condition aggravated [Unknown]
  - Arthralgia [Unknown]
  - Product distribution issue [Unknown]
  - Patient dissatisfaction with treatment [Unknown]
  - Product use issue [Unknown]

NARRATIVE: CASE EVENT DATE: 20230101
